FAERS Safety Report 13694421 (Version 1)
Quarter: 2017Q2

REPORT INFORMATION
  Report Type: Spontaneous
  Country: GB (occurrence: GB)
  Receive Date: 20170627
  Receipt Date: 20170627
  Transmission Date: 20170830
  Serious: Yes (Death, Other)
  Sender: FDA-Public Use
  Company Number: GB-PFIZER INC-2017278569

PATIENT
  Sex: Male

DRUGS (2)
  1. PREGABALIN. [Suspect]
     Active Substance: PREGABALIN
     Dosage: UNK
  2. PHENAZEPAM [Suspect]
     Active Substance: PHENAZEPAM

REACTIONS (2)
  - Drug use disorder [Unknown]
  - Completed suicide [Fatal]

NARRATIVE: CASE EVENT DATE: 2016
